FAERS Safety Report 5906878-4 (Version None)
Quarter: 2008Q4

REPORT INFORMATION
  Report Type: 
  Country: None (occurrence: None)
  Receive Date: 20081003
  Receipt Date: 20080923
  Transmission Date: 20090506
  Serious: Yes (Hospitalization)
  Sender: FDA-Public Use
  Company Number: JP-RANBAXY-2008RR-18270

PATIENT
  Age: 80 Year
  Sex: Female

DRUGS (3)
  1. HYDROCHOLROTHIAZIDE [Suspect]
  2. GLYCYRRHIZIN [Suspect]
     Dosage: 240 MG, QD
  3. POTASSIUM CHLORIDE [Concomitant]

REACTIONS (2)
  - BLOOD CREATINE PHOSPHOKINASE INCREASED [None]
  - HYPOKALAEMIA [None]
